FAERS Safety Report 6124696-1 (Version None)
Quarter: 2009Q1

REPORT INFORMATION
  Report Type: 
  Country: None (occurrence: None)
  Receive Date: 20090319
  Receipt Date: 20090312
  Transmission Date: 20090719
  Serious: Yes (Hospitalization)
  Sender: FDA-Public Use
  Company Number: DE-SANOFI-SYNTHELABO-F04200900014

PATIENT
  Sex: Male

DRUGS (4)
  1. DOCETAXEL [Suspect]
     Indication: GASTRIC CANCER STAGE IV
     Route: 041
     Dates: start: 20081013, end: 20081013
  2. FOLINIC ACID [Suspect]
     Indication: GASTRIC CANCER STAGE IV
     Route: 041
     Dates: start: 20081013, end: 20081013
  3. FLUOROURACIL [Suspect]
     Indication: GASTRIC CANCER STAGE IV
     Route: 041
     Dates: start: 20081013, end: 20081013
  4. OXALIPLATIN [Suspect]
     Indication: GASTRIC CANCER STAGE IV
     Route: 042
     Dates: start: 20081013, end: 20081013

REACTIONS (10)
  - ASCITES [None]
  - DEPRESSION [None]
  - ESCHERICHIA SEPSIS [None]
  - GENERALISED OEDEMA [None]
  - HYPOALBUMINAEMIA [None]
  - LARGE INTESTINE PERFORATION [None]
  - OEDEMA PERIPHERAL [None]
  - PLEURAL EFFUSION [None]
  - URINARY TRACT INFECTION [None]
  - VENOUS THROMBOSIS [None]
